FAERS Safety Report 8231292-9 (Version None)
Quarter: 2012Q1

REPORT INFORMATION
  Report Type: 
  Country: None (occurrence: None)
  Receive Date: 20120323
  Receipt Date: 20120312
  Transmission Date: 20120608
  Serious: Yes (Hospitalization, Other)
  Sender: FDA-Public Use
  Company Number: FR-PFIZER INC-2012067897

PATIENT
  Age: 82 Year
  Sex: Male

DRUGS (12)
  1. CLAFORAN [Concomitant]
     Dosage: UNK
     Route: 042
  2. ATORVASTATIN [Suspect]
     Indication: HYPERCHOLESTEROLAEMIA
     Dosage: UNK
     Route: 048
     Dates: end: 20120128
  3. AMLODIPINE BESYLATE [Concomitant]
     Dosage: UNK
     Route: 048
  4. PLAVIX [Concomitant]
     Dosage: UNK
     Route: 048
  5. VENTOLIN [Concomitant]
     Dosage: UNK
  6. ESIDRIX [Concomitant]
     Dosage: UNK
     Route: 048
  7. OLMESARTAN MEDOXOMIL [Suspect]
     Indication: HYPERTENSION
     Dosage: UNK
     Route: 048
     Dates: start: 20120101, end: 20120128
  8. ASPIRIN [Concomitant]
     Dosage: UNK
     Route: 048
  9. UMULINE [Concomitant]
     Dosage: UNK
     Route: 058
  10. AMOXICILLIN AND CLAVULANATE POTASSIUM [Suspect]
     Indication: LUNG INFECTION
     Dosage: UNK
     Route: 048
     Dates: start: 20120123, end: 20120128
  11. GLUCOPHAGE [Suspect]
     Indication: TYPE 2 DIABETES MELLITUS
     Dosage: UNK
     Route: 048
     Dates: end: 20120128
  12. ACETAMINOPHEN [Suspect]
     Dosage: UNK
     Route: 048
     Dates: end: 20120128

REACTIONS (4)
  - JAUNDICE [None]
  - LIVER INJURY [None]
  - HEPATIC CYST [None]
  - LUNG INFECTION [None]
